FAERS Safety Report 7907712-3 (Version None)
Quarter: 2011Q4

REPORT INFORMATION
  Report Type: 
  Country: None (occurrence: None)
  Receive Date: 20111110
  Receipt Date: 20110913
  Transmission Date: 20120403
  Serious: Yes (Death, Hospitalization)
  Sender: FDA-Public Use
  Company Number: US-ELI_LILLY_AND_COMPANY-US201108003288

PATIENT
  Sex: Male

DRUGS (12)
  1. NORMAX [Concomitant]
     Dosage: UNK
     Dates: start: 20070101
  2. HYDROXYZINE HYDROCHLORIDE [Concomitant]
     Dosage: UNK
     Dates: start: 20090101
  3. CISPLATIN [Suspect]
     Indication: NON-SMALL CELL LUNG CANCER
     Dosage: 80 MG/M2, UNK
     Route: 042
     Dates: start: 20110429
  4. VINORELBINE [Suspect]
     Indication: NON-SMALL CELL LUNG CANCER
     Dosage: 25 MG/M2, UNK
     Route: 042
     Dates: start: 20110429
  5. OMEPRAZOLE [Concomitant]
     Dosage: UNK
     Dates: start: 20090101
  6. SERTRALINE HYDROCHLORIDE [Concomitant]
     Dosage: UNK
     Dates: start: 20090101
  7. BUPROPION HCL [Concomitant]
     Dosage: UNK
     Dates: start: 20090101
  8. WELLBUTRIN [Concomitant]
  9. ZINC [Concomitant]
  10. MEGACE [Concomitant]
  11. CETUXIMAB [Suspect]
     Indication: NON-SMALL CELL LUNG CANCER
     Dosage: 490 MG/M2, UNK
     Route: 042
     Dates: start: 20110429
  12. TRIFLUOPERAZINE HCL [Concomitant]
     Dosage: UNK
     Dates: start: 20090101

REACTIONS (21)
  - CONFUSIONAL STATE [None]
  - BLOOD CALCIUM DECREASED [None]
  - DYSPNOEA [None]
  - CYANOSIS [None]
  - BLOOD POTASSIUM DECREASED [None]
  - DEHYDRATION [None]
  - HYPOTENSION [None]
  - NEPHROLITHIASIS [None]
  - FALL [None]
  - NEOPLASM PROGRESSION [None]
  - LEFT VENTRICULAR HYPERTROPHY [None]
  - RENAL FAILURE ACUTE [None]
  - ELECTROLYTE DEPLETION [None]
  - HYPOMAGNESAEMIA [None]
  - HYPOPHAGIA [None]
  - PALLOR [None]
  - BLOOD SODIUM DECREASED [None]
  - NON-SMALL CELL LUNG CANCER METASTATIC [None]
  - DECREASED APPETITE [None]
  - URINE KETONE BODY PRESENT [None]
  - BACTERIAL TEST POSITIVE [None]
